FAERS Safety Report 5571605-X (Version None)
Quarter: 2007Q4

REPORT INFORMATION
  Report Type: 
  Country: None (occurrence: None)
  Receive Date: 20071221
  Receipt Date: 20071217
  Transmission Date: 20080405
  Serious: Yes (Other)
  Sender: FDA-Public Use
  Company Number: US-AMGEN-QUU254892

PATIENT
  Sex: Female

DRUGS (1)
  1. NEUPOGEN [Suspect]

REACTIONS (2)
  - HYPOGAMMAGLOBULINAEMIA [None]
  - INTERSTITIAL LUNG DISEASE [None]
